FAERS Safety Report 10578403 (Version 1)
Quarter: 2014Q4

REPORT INFORMATION
  Report Type: Report from Study
  Country: US (occurrence: US)
  Receive Date: 20141112
  Receipt Date: 20141112
  Transmission Date: 20150529
  Serious: Yes (Other)
  Sender: FDA-Public Use
  Company Number: US-ROCHE-1489558

PATIENT
  Age: 28 Year

DRUGS (6)
  1. BEVACIZUMAB [Suspect]
     Active Substance: BEVACIZUMAB
     Dosage: CYCLE: 28 DAYS / CYCLE 2: IV OVER 30 TO 90 MINUTES
     Route: 042
     Dates: start: 20140519
  2. BEVACIZUMAB [Suspect]
     Active Substance: BEVACIZUMAB
     Indication: RENAL CELL CARCINOMA
     Dosage: CYCLE 28 DAYS / CYCLE 1: IV OVER 30 TO 90 MINUTES ?LAST ADMINISTRATION DATE OF IND AGENT PRIOR TO SA
     Route: 042
     Dates: start: 20140505
  3. TRC105 (ANTI-ENDOGLIN MAB) [Suspect]
     Active Substance: INVESTIGATIONAL PRODUCT
     Dosage: OVER 4 HOURS
     Route: 042
     Dates: start: 20140505
  4. TRC105 (ANTI-ENDOGLIN MAB) [Suspect]
     Active Substance: INVESTIGATIONAL PRODUCT
     Indication: RENAL CELL CARCINOMA
     Dosage: OVER 4 HOURS ?LAST ADMINISTRATION DATE OF IND AGENT PRIOR TO SAE 16/MAY/2014
     Route: 042
     Dates: start: 20140505
  5. TRC105 (ANTI-ENDOGLIN MAB) [Suspect]
     Active Substance: INVESTIGATIONAL PRODUCT
     Dosage: OVER 4 HOURS ON DAYS 15 AND 22
     Route: 042
     Dates: start: 20140505
  6. TRC105 (ANTI-ENDOGLIN MAB) [Suspect]
     Active Substance: INVESTIGATIONAL PRODUCT
     Dosage: OVER 1 TO 4 HOURS
     Route: 042
     Dates: start: 20140519

REACTIONS (2)
  - Hypertension [None]
  - Angiopathy [Unknown]

NARRATIVE: CASE EVENT DATE: 20140519
